FAERS Safety Report 6470108-8 (Version None)
Quarter: 2009Q4

REPORT INFORMATION
  Report Type: 
  Country: None (occurrence: None)
  Receive Date: 20091118
  Receipt Date: 20090821
  Transmission Date: 20100525
  Serious: Yes (Other)
  Sender: FDA-Public Use
  Company Number: 2009BI026873

PATIENT
  Age: 63 Year
  Sex: Female

DRUGS (3)
  1. TYSABRI [Suspect]
     Indication: MULTIPLE SCLEROSIS
     Dosage: 300 MG; QM; IV
     Route: 042
     Dates: start: 20090514
  2. AVONEX [Concomitant]
  3. AVONEX [Concomitant]

REACTIONS (8)
  - BALANCE DISORDER [None]
  - FALL [None]
  - GAIT DISTURBANCE [None]
  - HYPOTONIA [None]
  - MASKED FACIES [None]
  - PARKINSON'S DISEASE [None]
  - SKIN LACERATION [None]
  - TREMOR [None]
